FAERS Safety Report 5411106-2 (Version None)
Quarter: 2007Q3

REPORT INFORMATION
  Report Type: 
  Country: None (occurrence: None)
  Receive Date: 20070713
  Receipt Date: 20070419
  Transmission Date: 20080115
  Serious: No
  Sender: FDA-Public Use
  Company Number: 2007SP001417

PATIENT
  Age: 66 Year
  Sex: Male
  Weight: 124.7392 kg

DRUGS (5)
  1. LUNESTA [Suspect]
     Indication: INSOMNIA
     Dosage: 2 MG;PRN;ORAL ; 3 MG;PRN;ORAL
     Route: 048
     Dates: start: 20070401, end: 20070401
  2. LUNESTA [Suspect]
     Indication: INSOMNIA
     Dosage: 2 MG;PRN;ORAL ; 3 MG;PRN;ORAL
     Route: 048
     Dates: start: 20070401, end: 20070401
  3. ASPIRIN [Concomitant]
  4. LEVOTHYROXINE SODIUM [Concomitant]
  5. EYE DROPS [Concomitant]

REACTIONS (3)
  - ANXIETY [None]
  - DEPRESSION [None]
  - INITIAL INSOMNIA [None]
